FAERS Safety Report 10293630 (Version 2)
Quarter: 2014Q3

REPORT INFORMATION
  Report Type: Spontaneous
  Country: US (occurrence: US)
  Receive Date: 20140710
  Receipt Date: 20140806
  Transmission Date: 20150326
  Serious: Yes (Death)
  Sender: FDA-Public Use
  Company Number: US-ACTELION-A-NJ2014-101853

PATIENT
  Age: 62 Year
  Sex: Female

DRUGS (3)
  1. VELETRI [Suspect]
     Active Substance: EPOPROSTENOL
     Dosage: 22.5 NG/KG, PER MIN
     Route: 041
  2. VELETRI [Suspect]
     Active Substance: EPOPROSTENOL
     Indication: PULMONARY ARTERIAL HYPERTENSION
     Dosage: 21.5 NG/KG, PER MIN
     Route: 042
     Dates: start: 20130503
  3. LETAIRIS [Concomitant]
     Active Substance: AMBRISENTAN

REACTIONS (5)
  - Device alarm issue [Recovered/Resolved]
  - Nausea [Recovered/Resolved]
  - Micturition urgency [Recovered/Resolved]
  - Sudden death [Fatal]
  - Hyperhidrosis [Recovered/Resolved]

NARRATIVE: CASE EVENT DATE: 20140703
